FAERS Safety Report 7515017-8 (Version None)
Quarter: 2011Q2

REPORT INFORMATION
  Report Type: 
  Country: None (occurrence: None)
  Receive Date: 20110601
  Receipt Date: 20110518
  Transmission Date: 20111010
  Serious: Yes (Other)
  Sender: FDA-Public Use
  Company Number: PHHY2011BR44450

PATIENT
  Sex: Female

DRUGS (7)
  1. GLUCOSAMINE SULFATE W/CHONDROITIN SULFATE /MSM [Concomitant]
     Indication: OSTEOARTHRITIS
     Dosage: ONE TABLET DAILY DURING 3 MONTHS AND STOP FOR ONE MONTH
     Route: 048
  2. INSULIN [Concomitant]
     Indication: DIABETES MELLITUS
     Dosage: 15 MG, UNK
     Dates: start: 20110201
  3. CILOSTAZOL [Concomitant]
     Indication: CARDIOVASCULAR DISORDER
     Dosage: 100 MG, UNK
     Route: 048
  4. DIOVAN HCT [Suspect]
     Indication: HYPERTENSION
     Dosage: 1 DF, ONE TABLET IN THE MORNING (160/25 MG)
     Route: 048
  5. ASPIRIN [Concomitant]
     Indication: ANTICOAGULANT THERAPY
     Dosage: 100 MG, UNK
     Route: 048
  6. RASILEZ [Suspect]
     Indication: HYPERTENSION
     Dosage: 300 MG, ONE TABLET AT DINNER
     Route: 048
  7. CALCIUM CARBONATE W/VITAMIN D NOS [Concomitant]
     Indication: BONE DISORDER
     Dosage: ONE TABLET DAILY
     Route: 048
     Dates: start: 20100601

REACTIONS (1)
  - BREAST CANCER [None]
